FAERS Safety Report 11417454 (Version 6)
Quarter: 2016Q2

REPORT INFORMATION
  Report Type: Spontaneous
  Country: US (occurrence: US)
  Receive Date: 20150825
  Receipt Date: 20160509
  Transmission Date: 20160815
  Serious: Yes (Hospitalization, Other)
  Sender: FDA-Public Use
  Company Number: US-UCBSA-2015024879

PATIENT
  Age: 55 Year
  Sex: Female
  Weight: 59 kg

DRUGS (17)
  1. SEROQUEL [Suspect]
     Active Substance: QUETIAPINE FUMARATE
     Indication: SEIZURE
  2. SEROQUEL [Suspect]
     Active Substance: QUETIAPINE FUMARATE
     Indication: DEPRESSION
     Dosage: UNK
  3. MARIJUANA [Concomitant]
     Active Substance: CANNABIS SATIVA SUBSP. INDICA TOP
     Indication: SLEEP DISORDER
     Dosage: UNK
  4. VIMPAT [Suspect]
     Active Substance: LACOSAMIDE
     Indication: SEIZURE
     Dosage: 1 TABLET DAILY
     Route: 048
     Dates: start: 2011, end: 201412
  5. LAMOTRIGINE. [Suspect]
     Active Substance: LAMOTRIGINE
     Dosage: 1200MG
     Route: 048
     Dates: end: 2011
  6. NATURE-THROID [Concomitant]
     Active Substance: THYROID, PORCINE
     Indication: HYPOTHYROIDISM
     Dosage: 32.5 MG, ONCE DAILY (QD)
     Route: 048
  7. DEPAKOTE [Suspect]
     Active Substance: DIVALPROEX SODIUM
     Indication: SEIZURE
     Dosage: UNK
  8. ZONISAMIDE. [Suspect]
     Active Substance: ZONISAMIDE
     Indication: SEIZURE
     Dosage: UNK
  9. OXYCODONE [Concomitant]
     Active Substance: OXYCODONE
     Indication: FIBROMYALGIA
     Dosage: 30-60 MG AS NEEDED (PRN)
     Route: 048
  10. LAMOTRIGINE. [Suspect]
     Active Substance: LAMOTRIGINE
     Indication: SEIZURE
     Dosage: 800 MG
     Route: 048
     Dates: start: 2010, end: 2011
  11. THORAZINE [Concomitant]
     Active Substance: CHLORPROMAZINE
     Indication: PRODUCT USED FOR UNKNOWN INDICATION
     Dosage: UNK
  12. TRILEPTAL [Suspect]
     Active Substance: OXCARBAZEPINE
     Indication: SEIZURE
     Dosage: UNK
     Route: 048
     Dates: start: 2011, end: 2012
  13. NITROGLYCERIN. [Concomitant]
     Active Substance: NITROGLYCERIN
     Indication: MYOCARDIAL INFARCTION
     Dosage: UNK
  14. NEURONTIN [Suspect]
     Active Substance: GABAPENTIN
     Indication: SEIZURE
     Dosage: UNK
     Route: 048
     Dates: end: 2012
  15. LAMICTAL [Suspect]
     Active Substance: LAMOTRIGINE
     Indication: SEIZURE
     Dosage: UNK
  16. ASPIRIN. [Concomitant]
     Active Substance: ASPIRIN
     Indication: MYOCARDIAL INFARCTION
     Dosage: UNK
  17. IMITREX [Concomitant]
     Active Substance: SUMATRIPTAN SUCCINATE
     Indication: MIGRAINE
     Dosage: 200 MG, AS NEEDED (PRN)
     Route: 048

REACTIONS (43)
  - Vomiting [Unknown]
  - Cognitive disorder [Unknown]
  - Strabismus [Unknown]
  - Dysstasia [Unknown]
  - Depression [Unknown]
  - Insomnia [Not Recovered/Not Resolved]
  - Increased tendency to bruise [Unknown]
  - Hyperhidrosis [Unknown]
  - Amnesia [Unknown]
  - Drug hypersensitivity [Unknown]
  - Ovarian cancer stage I [Recovered/Resolved]
  - Myocardial infarction [Unknown]
  - Joint injury [Unknown]
  - Menopause [Unknown]
  - Alopecia [Unknown]
  - Meniscus injury [Not Recovered/Not Resolved]
  - Emotional distress [Recovered/Resolved]
  - Psychotic disorder [Unknown]
  - Laceration [Not Recovered/Not Resolved]
  - Blood iron decreased [Not Recovered/Not Resolved]
  - General physical condition abnormal [Recovered/Resolved]
  - Diplopia [Unknown]
  - Constipation [Not Recovered/Not Resolved]
  - Haemorrhage [Unknown]
  - Pollakiuria [Unknown]
  - Bladder pain [Unknown]
  - Vision blurred [Unknown]
  - Neuropathy peripheral [Not Recovered/Not Resolved]
  - Loss of consciousness [Unknown]
  - Muscular weakness [Unknown]
  - Pain [Unknown]
  - Fall [Unknown]
  - Logorrhoea [Unknown]
  - Balance disorder [Unknown]
  - Hostility [Recovered/Resolved]
  - Drug ineffective [Unknown]
  - Contusion [Not Recovered/Not Resolved]
  - Irritability [Recovered/Resolved]
  - Disturbance in attention [Unknown]
  - Seizure [Recovered/Resolved]
  - Agitation [Recovered/Resolved]
  - Asthenia [Unknown]
  - Mania [Unknown]

NARRATIVE: CASE EVENT DATE: 2011
